FAERS Safety Report 9467613 (Version 1)
Quarter: 2013Q3

REPORT INFORMATION
  Report Type: Spontaneous
  Country: US (occurrence: US)
  Receive Date: 20130821
  Receipt Date: 20130821
  Transmission Date: 20140515
  Serious: No
  Sender: FDA-Public Use
  Company Number: US-009507513-1308USA004962

PATIENT
  Age: 38 Year
  Sex: Female

DRUGS (1)
  1. EPTIFIBATIDE [Suspect]
     Indication: CARDIAC DISORDER
     Route: 022

REACTIONS (1)
  - Drug ineffective [Recovered/Resolved]
